FAERS Safety Report 9945338 (Version 1)
Quarter: 2014Q1

REPORT INFORMATION
  Report Type: Report from Study
  Country: US (occurrence: US)
  Receive Date: 20140303
  Receipt Date: 20140303
  Transmission Date: 20141002
  Serious: No
  Sender: FDA-Public Use
  Company Number: US-ABBVIE-13P-163-1049199-00

PATIENT
  Age: 54 Year
  Sex: Male
  Weight: 77.18 kg

DRUGS (3)
  1. HUMIRA [Suspect]
     Indication: BEHCET^S SYNDROME
     Route: 058
     Dates: start: 20130212, end: 20130212
  2. FLONASE [Concomitant]
     Indication: HYPERSENSITIVITY
  3. VALTREX [Concomitant]
     Indication: HERPES OPHTHALMIC

REACTIONS (1)
  - Off label use [Unknown]
